FAERS Safety Report 24758565 (Version 1)
Quarter: 2024Q4

REPORT INFORMATION
  Report Type: Spontaneous
  Country: IL (occurrence: IL)
  Receive Date: 20241220
  Receipt Date: 20241220
  Transmission Date: 20250114
  Serious: Yes (Other)
  Sender: MSN LABORATORIES PRIVATE LIMITED
  Company Number: IL-MSNLABS-2024MSNLIT02770

PATIENT

DRUGS (3)
  1. DEFERASIROX [Suspect]
     Active Substance: DEFERASIROX
     Indication: Chelation therapy
     Route: 065
  2. VITAMIN D [Suspect]
     Active Substance: VITAMIN D NOS
     Indication: Thalassaemia beta
     Dosage: DURATION: 2.3 YEARS
     Route: 065
  3. CALCIUM [Suspect]
     Active Substance: CALCIUM
     Indication: Thalassaemia beta
     Route: 065

REACTIONS (1)
  - Nephrolithiasis [Unknown]
